FAERS Safety Report 23669448 (Version 1)
Quarter: 2024Q1

REPORT INFORMATION
  Report Type: Report from Study
  Country: MX (occurrence: MX)
  Receive Date: 20240325
  Receipt Date: 20240325
  Transmission Date: 20240410
  Serious: Yes (Death, Congenital Anomaly)
  Sender: FDA-Public Use
  Company Number: MX-AstraZeneca-2024A069875

PATIENT
  Age: 1 Day
  Sex: Female
  Weight: 3.2 kg

DRUGS (3)
  1. SYNAGIS [Suspect]
     Active Substance: PALIVIZUMAB
     Indication: Respiratory syncytial virus infection
     Route: 030
     Dates: end: 20231205
  2. SYNAGIS [Suspect]
     Active Substance: PALIVIZUMAB
     Route: 030
     Dates: start: 20240123, end: 20240123
  3. SYNAGIS [Suspect]
     Active Substance: PALIVIZUMAB
     Route: 030
     Dates: start: 20240220, end: 20240220

REACTIONS (2)
  - Disease complication [Fatal]
  - Gastric infection [Fatal]

NARRATIVE: CASE EVENT DATE: 20231026
